FAERS Safety Report 6150052-6 (Version None)
Quarter: 2009Q2

REPORT INFORMATION
  Report Type: 
  Country: None (occurrence: None)
  Receive Date: 20090407
  Receipt Date: 20090407
  Transmission Date: 20091009
  Serious: Yes (Other)
  Sender: FDA-Public Use
  Company Number: None

PATIENT
  Age: 68 Year
  Sex: Female
  Weight: 58.9676 kg

DRUGS (1)
  1. SEREVENT [Suspect]
     Indication: BRONCHIECTASIS
     Dosage: 2 TIMES DAILY OTHER ABT 1 1/2 MONTHS
     Route: 050
     Dates: start: 20070926, end: 20071104

REACTIONS (2)
  - HEART RATE INCREASED [None]
  - HEART RATE IRREGULAR [None]
